FAERS Safety Report 23588279 (Version 1)
Quarter: 2024Q1

REPORT INFORMATION
  Report Type: Spontaneous
  Country: CY (occurrence: CY)
  Receive Date: 20240302
  Receipt Date: 20240302
  Transmission Date: 20240410
  Serious: Yes (Life-Threatening, Hospitalization, Other)
  Sender: FDA-Public Use
  Company Number: CY-MACLEODS PHARMACEUTICALS US LTD-MAC2024046063

PATIENT

DRUGS (1)
  1. OLANZAPINE [Suspect]
     Active Substance: OLANZAPINE
     Indication: Schizophrenia
     Dosage: 10 MILLIGRAM (FIRST DOSE)
     Route: 065

REACTIONS (6)
  - Altered state of consciousness [Recovered/Resolved]
  - Atrioventricular block first degree [Unknown]
  - Electrocardiogram RR interval prolonged [Unknown]
  - Hypothermia [Recovered/Resolved]
  - Sinus bradycardia [Unknown]
  - Electrocardiogram QT prolonged [Unknown]
